FAERS Safety Report 6538573-5 (Version None)
Quarter: 2010Q1

REPORT INFORMATION
  Report Type: 
  Country: None (occurrence: None)
  Receive Date: 20100113
  Receipt Date: 20100113
  Transmission Date: 20100710
  Serious: No
  Sender: FDA-Public Use
  Company Number: None

PATIENT
  Age: 55 Year
  Sex: Female
  Weight: 67.1324 kg

DRUGS (1)
  1. TOBREX [Suspect]
     Indication: EYE INFECTION
     Dosage: BID OTIC (BID FOR 4 DAYS)
     Route: 001
     Dates: start: 20091210, end: 20091214

REACTIONS (3)
  - AURA [None]
  - VISION BLURRED [None]
  - VISUAL IMPAIRMENT [None]
